FAERS Safety Report 21361493 (Version 1)
Quarter: 2022Q3

REPORT INFORMATION
  Report Type: Spontaneous
  Country: US (occurrence: US)
  Receive Date: 20220921
  Receipt Date: 20220921
  Transmission Date: 20221026
  Serious: No
  Sender: FDA-Public Use
  Company Number: US-009507513-2208USA010585

PATIENT
  Age: 42 Year
  Sex: Male

DRUGS (6)
  1. VERQUVO [Suspect]
     Active Substance: VERICIGUAT
     Indication: Cardiac failure
     Dosage: 2.5 MG
     Route: 048
     Dates: start: 202205
  2. VERQUVO [Suspect]
     Active Substance: VERICIGUAT
     Dosage: 10 MG
     Route: 048
     Dates: start: 2022, end: 20220823
  3. ENTRESTO [Concomitant]
     Active Substance: SACUBITRIL\VALSARTAN
  4. COREG [Concomitant]
     Active Substance: CARVEDILOL
  5. JARDIANCE [Concomitant]
     Active Substance: EMPAGLIFLOZIN
  6. SPIRONOLACTONE [Concomitant]
     Active Substance: SPIRONOLACTONE

REACTIONS (1)
  - Gastrooesophageal reflux disease [Unknown]

NARRATIVE: CASE EVENT DATE: 20220101
